FAERS Safety Report 8012139-2 (Version None)
Quarter: 2011Q4

REPORT INFORMATION
  Report Type: 
  Country: None (occurrence: None)
  Receive Date: 20111228
  Receipt Date: 20111213
  Transmission Date: 20120403
  Serious: Yes (Hospitalization)
  Sender: FDA-Public Use
  Company Number: GB-PFIZER INC-2011307873

PATIENT
  Age: 92 Year
  Sex: Male

DRUGS (2)
  1. LEVOTHYROXINE SODIUM [Concomitant]
     Indication: HYPOTHYROIDISM
     Dosage: UNK
     Route: 048
  2. IBUPROFEN [Suspect]
     Indication: NECK PAIN
     Dosage: 400 MG, 3X/DAY
     Route: 048
     Dates: end: 20111122

REACTIONS (4)
  - GASTRITIS [None]
  - OESOPHAGITIS [None]
  - ATRIAL FIBRILLATION [None]
  - DYSPNOEA [None]
